FAERS Safety Report 5758075-3 (Version None)
Quarter: 2008Q2

REPORT INFORMATION
  Report Type: 
  Country: None (occurrence: None)
  Receive Date: 20080602
  Receipt Date: 20080602
  Transmission Date: 20081010
  Serious: Yes (Other)
  Sender: FDA-Public Use
  Company Number: None

PATIENT
  Age: 45 Year
  Sex: Female
  Weight: 99.7913 kg

DRUGS (1)
  1. CHANTIX [Suspect]
     Indication: SMOKING CESSATION THERAPY
     Dosage: 1 X DAILY PO
     Route: 048
     Dates: start: 20070618, end: 20070806

REACTIONS (21)
  - DEHYDRATION [None]
  - DISTURBANCE IN ATTENTION [None]
  - DYSPNOEA [None]
  - FATIGUE [None]
  - FEAR [None]
  - FEELING ABNORMAL [None]
  - GASTROOESOPHAGEAL REFLUX DISEASE [None]
  - HEART RATE INCREASED [None]
  - HEAT EXHAUSTION [None]
  - INFLUENZA LIKE ILLNESS [None]
  - LETHARGY [None]
  - MEMORY IMPAIRMENT [None]
  - MUSCULAR WEAKNESS [None]
  - PAIN [None]
  - PALPITATIONS [None]
  - PYREXIA [None]
  - RHEUMATOID ARTHRITIS [None]
  - SPEECH DISORDER [None]
  - TINNITUS [None]
  - VISUAL ACUITY REDUCED [None]
  - WEIGHT INCREASED [None]
